FAERS Safety Report 5060503-6 (Version None)
Quarter: 2006Q3

REPORT INFORMATION
  Report Type: 
  Country: None (occurrence: None)
  Receive Date: 20060721
  Receipt Date: 20060721
  Transmission Date: 20061208
  Serious: Yes (Hospitalization)
  Sender: FDA-Public Use
  Company Number: None

PATIENT
  Age: 67 Year
  Sex: Male
  Weight: 113.2 kg

DRUGS (2)
  1. EPTIFIBATIDE   2 MG/ML  -20 MG-  MILLENIUM/SCHERING-PLOUGH [Suspect]
     Indication: ACUTE CORONARY SYNDROME
     Dosage: TIMES ONE IV BOLUS
     Route: 040
     Dates: start: 20060711, end: 20060711
  2. EPTIFIBATIDE   0.75 MG/ML  -75 MG-  MILLENIUM/SCHERING-PLOUGH [Suspect]
     Dosage: 13.5 MG/HOUR X APPROX 21 HOURS IV DRIP
     Route: 041
     Dates: start: 20060711, end: 20060712

REACTIONS (7)
  - BRONCHITIS ACUTE [None]
  - CARDIOMYOPATHY [None]
  - CORONARY ARTERY DISEASE [None]
  - EPISTAXIS [None]
  - RESPIRATORY FAILURE [None]
  - THROMBOCYTOPENIA [None]
  - TROPONIN INCREASED [None]
